FAERS Safety Report 7525751-1 (Version None)
Quarter: 2011Q2

REPORT INFORMATION
  Report Type: 
  Country: None (occurrence: None)
  Receive Date: 20110606
  Receipt Date: 20110602
  Transmission Date: 20111010
  Serious: Yes (Life-Threatening, Other)
  Sender: FDA-Public Use
  Company Number: PHHY2011CN48309

PATIENT
  Age: 70 Year
  Sex: Female

DRUGS (2)
  1. ANTIHYPERTENSIVE DRUGS [Concomitant]
  2. ZOLEDRONIC ACID [Suspect]
     Indication: OSTEOPOROSIS POSTMENOPAUSAL
     Dosage: 5 MG, I.V. GTT. Q.D
     Route: 042
     Dates: start: 20110602

REACTIONS (4)
  - BLOOD PRESSURE INCREASED [None]
  - ATRIAL FIBRILLATION [None]
  - DYSPNOEA [None]
  - HYPERTENSIVE CRISIS [None]
